FAERS Safety Report 15290955 (Version 5)
Quarter: 2018Q4

REPORT INFORMATION
  Report Type: Report from Study
  Country: None (occurrence: ES)
  Receive Date: 20180817
  Receipt Date: 20181214
  Transmission Date: 20190204
  Serious: Yes (Other)
  Sender: FDA-Public Use
  Company Number: ES-ABBVIE-18K-144-2409639-00

PATIENT
  Age: 48 Year
  Sex: Female
  Weight: 100 kg

DRUGS (1)
  1. DUODOPA [Suspect]
     Active Substance: CARBIDOPA\LEVODOPA
     Indication: PARKINSON^S DISEASE
     Route: 050
     Dates: start: 20180405, end: 20180809

REACTIONS (4)
  - Demyelinating polyneuropathy [Unknown]
  - Hypoaesthesia [Not Recovered/Not Resolved]
  - Device issue [Unknown]
  - Hypoaesthesia [Recovered/Resolved]

NARRATIVE: CASE EVENT DATE: 20180629
